FAERS Safety Report 8761990 (Version 3)
Quarter: 2013Q2

REPORT INFORMATION
  Report Type: Spontaneous
  Country: US (occurrence: US)
  Receive Date: 20120830
  Receipt Date: 20130416
  Transmission Date: 20140414
  Serious: Yes (Life-Threatening, Hospitalization, Disabling, Other)
  Sender: FDA-Public Use
  Company Number: US-009507513-1208USA011546

PATIENT
  Sex: Female
  Weight: 65.76 kg

DRUGS (3)
  1. NUVARING [Suspect]
     Indication: CONTRACEPTION
     Dosage: UNK
     Route: 067
     Dates: start: 201007, end: 20101009
  2. NUVARING [Suspect]
     Indication: OVARIAN CYST
  3. NUVARING [Suspect]
     Indication: PELVIC PAIN

REACTIONS (26)
  - Pulmonary infarction [Unknown]
  - Pulmonary embolism [Unknown]
  - Lung disorder [Unknown]
  - Pain [Unknown]
  - Heart injury [Unknown]
  - Appendicitis [Unknown]
  - Peritonitis [Unknown]
  - Depression [Not Recovered/Not Resolved]
  - Anxiety [Unknown]
  - Activities of daily living impaired [Unknown]
  - Antibody test positive [Unknown]
  - Migraine [Not Recovered/Not Resolved]
  - Pneumonia [Unknown]
  - Pneumonia [Unknown]
  - Headache [Unknown]
  - Pulmonary hypertension [Unknown]
  - Electrocardiogram ST-T change [Unknown]
  - Liver disorder [Unknown]
  - Drug screen positive [Unknown]
  - Somnolence [Unknown]
  - Off label use [Unknown]
  - Drug screen negative [Unknown]
  - Malnutrition [Unknown]
  - Blood albumin decreased [Unknown]
  - Musculoskeletal pain [Unknown]
  - Cardiac murmur [Unknown]
